FAERS Safety Report 19968857 (Version 1)
Quarter: 2021Q4

REPORT INFORMATION
  Report Type: Spontaneous
  Country: US (occurrence: US)
  Receive Date: 20211019
  Receipt Date: 20211019
  Transmission Date: 20220303
  Serious: Yes (Other)
  Sender: FDA-Public Use
  Company Number: None

PATIENT
  Age: 63 Year
  Sex: Male
  Weight: 83.3 kg

DRUGS (2)
  1. VELCADE [Suspect]
     Active Substance: BORTEZOMIB
     Indication: Plasma cell myeloma
     Dosage: ?          OTHER FREQUENCY:WEEKLY;
     Route: 058
     Dates: start: 20211001
  2. DARZALEX FASPRO [Suspect]
     Active Substance: DARATUMUMAB\HYALURONIDASE-FIHJ
     Indication: Plasma cell myeloma
     Dosage: ?          OTHER FREQUENCY:WEEKLY;
     Route: 058
     Dates: start: 20211001

REACTIONS (3)
  - Cough [None]
  - Nasal congestion [None]
  - Lacrimation increased [None]

NARRATIVE: CASE EVENT DATE: 20211001
